FAERS Safety Report 10836615 (Version 1)
Quarter: 2015Q1

REPORT INFORMATION
  Report Type: Other
  Country: IT (occurrence: IT)
  Receive Date: 20150219
  Receipt Date: 20150219
  Transmission Date: 20150721
  Serious: Yes (Hospitalization)
  Sender: FDA-Public Use
  Company Number: IT-MYLANLABS-2015M1004182

PATIENT

DRUGS (6)
  1. ESOMEPRAZOLE SODIUM. [Concomitant]
     Active Substance: ESOMEPRAZOLE SODIUM
     Indication: PRODUCT USED FOR UNKNOWN INDICATION
     Dosage: UNK
  2. MEDROL [Suspect]
     Active Substance: METHYLPREDNISOLONE
     Indication: SCLERODERMA
     Dosage: 1 DF, QD
     Route: 048
     Dates: start: 20120101
  3. METHOTREXATE [Suspect]
     Active Substance: METHOTREXATE
     Indication: SCLERODERMA
     Dosage: 1 DF, CYCLE
     Route: 030
     Dates: start: 20130101
  4. FOLINA                             /00024201/ [Concomitant]
     Active Substance: FOLIC ACID
     Indication: PRODUCT USED FOR UNKNOWN INDICATION
     Dosage: UNK
  5. MABTHERA [Suspect]
     Active Substance: RITUXIMAB
     Indication: SCLERODERMA
     Dosage: 1 DF, CYCLE
     Route: 042
     Dates: start: 20140101
  6. ESOMEPRAZOLE SODIUM. [Concomitant]
     Active Substance: ESOMEPRAZOLE SODIUM
     Dosage: 40 MG, UNK
     Dates: start: 201410

REACTIONS (1)
  - Abdominal pain upper [Recovering/Resolving]

NARRATIVE: CASE EVENT DATE: 20141020
